FAERS Safety Report 6138950-0 (Version None)
Quarter: 2009Q1

REPORT INFORMATION
  Report Type: 
  Country: None (occurrence: None)
  Receive Date: 20090324
  Receipt Date: 20090318
  Transmission Date: 20090719
  Serious: Yes (Death)
  Sender: FDA-Public Use
  Company Number: 221526

PATIENT
  Age: 65 Year
  Sex: Female

DRUGS (4)
  1. METHOTREXATE [Suspect]
     Indication: POLYMYOSITIS
  2. PREDNISONE [Suspect]
     Indication: POLYMYOSITIS
     Dosage: 20 MG
  3. AZATHIOPRINE [Suspect]
     Indication: POLYMYOSITIS
  4. CYCLOPHOSPHAMIDE [Suspect]
     Indication: POLYMYOSITIS

REACTIONS (6)
  - BONE MARROW FAILURE [None]
  - CENTRAL NERVOUS SYSTEM LYMPHOMA [None]
  - EPSTEIN-BARR VIRUS INFECTION [None]
  - ERYTHROPOIESIS ABNORMAL [None]
  - PANCYTOPENIA [None]
  - RESPIRATORY DISORDER [None]
